FAERS Safety Report 23264460 (Version 3)
Quarter: 2024Q2

REPORT INFORMATION
  Report Type: Report from Study
  Country: CA (occurrence: CA)
  Receive Date: 20231205
  Receipt Date: 20240604
  Transmission Date: 20240716
  Serious: Yes (Other)
  Sender: FDA-Public Use
  Company Number: CA-VER-202300231

PATIENT
  Age: 67 Year
  Sex: Male

DRUGS (3)
  1. TRELSTAR [Suspect]
     Active Substance: TRIPTORELIN PAMOATE
     Indication: Prostate cancer
     Dosage: 0.125 MILLIGRAM(S) (22.5 MILLIGRAM(S), 1 IN 6 MONTH), POWDER FOR PROLONGED-RELEASE SUSPENSION FOR IN
     Route: 030
     Dates: start: 20240515, end: 20240515
  2. TRELSTAR [Suspect]
     Active Substance: TRIPTORELIN PAMOATE
     Indication: Prostate cancer
     Dosage: 22.5 MILLIGRAM, ONCE / 6 MONTHS, INTRAMUSCULAR (22.5 MG,6 M)
     Route: 030
     Dates: start: 20230517, end: 20230517
  3. TRELSTAR [Suspect]
     Active Substance: TRIPTORELIN PAMOATE
     Indication: Prostate cancer
     Dosage: 22.5 MILLIGRAM, ONCE / 6 MONTHS, INTRAMUSCULAR (22.5 MG,6 M)
     Route: 030
     Dates: start: 20231115, end: 20231115

REACTIONS (5)
  - Skin neoplasm excision [Unknown]
  - Product physical issue [Unknown]
  - Needle issue [Unknown]
  - Wrong technique in product usage process [Unknown]
  - Skin cancer [Unknown]

NARRATIVE: CASE EVENT DATE: 20230517
